FAERS Safety Report 17233028 (Version 1)
Quarter: 2020Q1

REPORT INFORMATION
  Report Type: Spontaneous
  Country: ES (occurrence: ES)
  Receive Date: 20200104
  Receipt Date: 20200104
  Transmission Date: 20200409
  Serious: Yes (Other)
  Sender: FDA-Public Use
  Company Number: ES-TEVA-2019-ES-1161113

PATIENT
  Age: 51 Year
  Sex: Female
  Weight: 55 kg

DRUGS (2)
  1. NOCTAMID 1 MG COMPRIMIDOS , 30 COMPRIMIDOS [Concomitant]
     Dosage: 1 MILLIGRAM DAILY; 0-0-0-1; 30 TABLETS
     Route: 048
     Dates: start: 20190810
  2. AMOXICILINA 500 MG 20 COMPRIMIDOS [Suspect]
     Active Substance: AMOXICILLIN
     Indication: ANIMAL BITE
     Dosage: 500 MG; 20 TABLETS
     Route: 048
     Dates: start: 20191123, end: 20191127

REACTIONS (2)
  - Laryngeal oedema [Recovered/Resolved]
  - Tongue oedema [Recovered/Resolved]

NARRATIVE: CASE EVENT DATE: 201911
